FAERS Safety Report 12568202 (Version 5)
Quarter: 2016Q3

REPORT INFORMATION
  Report Type: Spontaneous
  Country: US (occurrence: US)
  Receive Date: 20160718
  Receipt Date: 20160902
  Transmission Date: 20161109
  Serious: Yes (Death, Hospitalization)
  Sender: FDA-Public Use
  Company Number: US-ACTELION-A-US2016-139176

PATIENT
  Age: 23 Year
  Sex: Male

DRUGS (13)
  1. UPTRAVI [Suspect]
     Active Substance: SELEXIPAG
     Indication: PULMONARY ARTERIAL HYPERTENSION
     Dosage: 1400 MCG, BID
     Route: 048
     Dates: start: 20160614, end: 20160807
  2. OPSUMIT [Suspect]
     Active Substance: MACITENTAN
     Indication: PULMONARY ARTERIAL HYPERTENSION
     Dosage: UNK
     Route: 048
     Dates: start: 20160608, end: 20160822
  3. REMICADE [Concomitant]
     Active Substance: INFLIXIMAB
  4. QUETIAPINE. [Concomitant]
     Active Substance: QUETIAPINE
  5. LORAZEPAM. [Concomitant]
     Active Substance: LORAZEPAM
  6. CLONIDINE. [Concomitant]
     Active Substance: CLONIDINE
  7. FERROUS SULFATE. [Concomitant]
     Active Substance: FERROUS SULFATE
  8. PREDNISONE. [Concomitant]
     Active Substance: PREDNISONE
  9. UPTRAVI [Suspect]
     Active Substance: SELEXIPAG
     Dosage: UNK
     Route: 048
     Dates: start: 20160613
  10. IRON [Concomitant]
     Active Substance: IRON
  11. SIMETHICONE (DIMETHICONE) [Concomitant]
     Active Substance: DIMETHICONE
  12. UPTRAVI [Suspect]
     Active Substance: SELEXIPAG
     Dosage: 1600 MCG, BID
     Route: 048
  13. VELETRI [Concomitant]
     Active Substance: EPOPROSTENOL
     Indication: PULMONARY ARTERIAL HYPERTENSION
     Route: 042

REACTIONS (10)
  - Acute respiratory failure [Fatal]
  - Oxygen saturation decreased [Unknown]
  - Pneumonia [Unknown]
  - Dyspnoea [Fatal]
  - Haemoptysis [Fatal]
  - Pulmonary arterial hypertension [Fatal]
  - Bronchial secretion retention [Unknown]
  - Lung infiltration [Unknown]
  - Disease progression [Fatal]
  - Mechanical ventilation [Unknown]

NARRATIVE: CASE EVENT DATE: 20160706
